FAERS Safety Report 4441350-2 (Version None)
Quarter: 2004Q3

REPORT INFORMATION
  Report Type: 
  Country: None (occurrence: None)
  Receive Date: 20040728
  Receipt Date: 20040325
  Transmission Date: 20050211
  Serious: No
  Sender: FDA-Public Use
  Company Number: USA040363207

PATIENT
  Age: 8 Year
  Sex: Female
  Weight: 37 kg

DRUGS (4)
  1. STRATTERA [Suspect]
     Indication: DISTURBANCE IN ATTENTION
     Dosage: 60 MG IN THE MORNING
     Dates: start: 20040320
  2. STRATTERA [Suspect]
     Indication: DYSLEXIA
     Dosage: 60 MG IN THE MORNING
     Dates: start: 20040320
  3. ZYRTEC [Concomitant]
  4. ALLEGRA (FEXOFNADINE HYDROCHLORIDE) [Concomitant]

REACTIONS (5)
  - HEADACHE [None]
  - HYPOAESTHESIA [None]
  - NAUSEA [None]
  - PRESCRIBED OVERDOSE [None]
  - PRURITUS GENERALISED [None]
